FAERS Safety Report 5016584-9 (Version None)
Quarter: 2006Q2

REPORT INFORMATION
  Report Type: 
  Country: None (occurrence: None)
  Receive Date: 20060414
  Receipt Date: 20050503
  Transmission Date: 20061013
  Serious: Yes (Other)
  Sender: FDA-Public Use
  Company Number: US-JNJFOC-20050404987

PATIENT
  Age: 19 Year
  Sex: 0

DRUGS (1)
  1. ULTRAM [Suspect]

REACTIONS (1)
  - DRUG DEPENDENCE [None]
